FAERS Safety Report 10004050 (Version 1)
Quarter: 2014Q1

REPORT INFORMATION
  Report Type: Spontaneous
  Country: US (occurrence: US)
  Receive Date: 20140312
  Receipt Date: 20140312
  Transmission Date: 20141002
  Serious: Yes (Death)
  Sender: FDA-Public Use
  Company Number: US-ROCHE-1364520

PATIENT
  Age: 55 Year
  Sex: Female

DRUGS (7)
  1. XELODA [Suspect]
     Indication: COLON CANCER
     Route: 048
     Dates: start: 20120814, end: 20130130
  2. PREDNISONE [Concomitant]
  3. METOCLOPRAMIDE [Concomitant]
  4. SERTRALINE [Concomitant]
  5. IRINOTECAN [Concomitant]
  6. VICODIN [Concomitant]
  7. FENTANYL PATCH [Concomitant]

REACTIONS (1)
  - Death [Fatal]
